FAERS Safety Report 23244382 (Version 2)
Quarter: 2023Q4

REPORT INFORMATION
  Report Type: Report from Study
  Country: CA (occurrence: CA)
  Receive Date: 20231130
  Receipt Date: 20231204
  Transmission Date: 20240110
  Serious: Yes (Hospitalization)
  Sender: FDA-Public Use
  Company Number: CA-AstraZeneca-CH-00516524A

PATIENT
  Age: 66 Year
  Sex: Female

DRUGS (2)
  1. SOLIRIS [Suspect]
     Active Substance: ECULIZUMAB
     Indication: Myasthenia gravis
     Dosage: 900 MILLIGRAM, QW
     Route: 042
     Dates: start: 20200710, end: 20200731
  2. SOLIRIS [Suspect]
     Active Substance: ECULIZUMAB
     Dosage: 1200 MILLIGRAM, Q2W
     Route: 042
     Dates: start: 20200807

REACTIONS (5)
  - Fall [Recovered/Resolved]
  - Gait inability [Recovering/Resolving]
  - Arthralgia [Recovering/Resolving]
  - Pain in extremity [Recovering/Resolving]
  - Back pain [Unknown]

NARRATIVE: CASE EVENT DATE: 20231101
